FAERS Safety Report 25184442 (Version 1)
Quarter: 2025Q2

REPORT INFORMATION
  Report Type: Spontaneous
  Country: US (occurrence: None)
  Receive Date: 20250409
  Receipt Date: 20250409
  Transmission Date: 20250717
  Serious: Yes (Hospitalization)
  Sender: FDA-CTU
  Company Number: None

PATIENT
  Age: 78 Year
  Sex: Male
  Weight: 90 kg

DRUGS (2)
  1. ERTAPENEM [Suspect]
     Active Substance: ERTAPENEM
     Indication: Infection
     Dosage: 1.00 G GRAM(S) DAILY INTRAVENOUS
     Route: 042
     Dates: start: 20240917, end: 20240922
  2. OXYCODONE HYDROCHLORIDE [Suspect]
     Active Substance: OXYCODONE HYDROCHLORIDE
     Indication: Pain
     Route: 048
     Dates: start: 20240917, end: 20240922

REACTIONS (8)
  - Aggression [None]
  - Agitation [None]
  - Delirium [None]
  - Delusion [None]
  - Hallucination, visual [None]
  - Disorientation [None]
  - Restlessness [None]
  - Metabolic encephalopathy [None]

NARRATIVE: CASE EVENT DATE: 20240925
